FAERS Safety Report 4632296-5 (Version None)
Quarter: 2005Q2

REPORT INFORMATION
  Report Type: 
  Country: None (occurrence: None)
  Receive Date: 20050411
  Receipt Date: 20050331
  Transmission Date: 20051028
  Serious: Yes (Hospitalization)
  Sender: FDA-Public Use
  Company Number: JP-ROCHE-400849

PATIENT
  Sex: Male

DRUGS (3)
  1. PEGASYS [Suspect]
     Route: 058
     Dates: start: 20040515, end: 20040615
  2. PEGASYS [Suspect]
     Route: 058
     Dates: start: 20040615, end: 20040715
  3. PEGASYS [Suspect]
     Route: 058
     Dates: start: 20040715, end: 20050215

REACTIONS (5)
  - MALAISE [None]
  - NEPHROTIC SYNDROME [None]
  - PLATELET COUNT DECREASED [None]
  - PLEURAL EFFUSION [None]
  - RENAL IMPAIRMENT [None]
